FAERS Safety Report 17570450 (Version 1)
Quarter: 2020Q1

REPORT INFORMATION
  Report Type: Spontaneous
  Country: FR (occurrence: FR)
  Receive Date: 20200323
  Receipt Date: 20200323
  Transmission Date: 20200409
  Serious: Yes (Other)
  Sender: FDA-Public Use
  Company Number: FR-TEVA-2020-FR-1206308

PATIENT
  Age: 33 Year
  Sex: Female
  Weight: 64 kg

DRUGS (7)
  1. THERALENE 4 POUR CENT, SOLUTION BUVABLE EN GOUTTES [Concomitant]
     Active Substance: TRIMEPRAZINE
     Dosage: 15GTT
     Route: 048
  2. LYSANXIA 10 MG, COMPRIME [Concomitant]
     Active Substance: PRAZEPAM
     Dosage: 10MG
     Route: 048
  3. CIPROFLOXACINE [Suspect]
     Active Substance: CIPROFLOXACIN
     Indication: OSTEOMYELITIS
     Dosage: 750MG
     Route: 048
     Dates: start: 20200129, end: 20200226
  4. VANCOMYCINE [Suspect]
     Active Substance: VANCOMYCIN
     Indication: OSTEOMYELITIS
     Dosage: 1G
     Route: 042
     Dates: start: 20200129, end: 20200226
  5. LAROXYL 50 MG, COMPRIME PELLICULE [Concomitant]
     Active Substance: AMITRIPTYLINE HYDROCHLORIDE
     Dosage: 50MG
     Route: 048
  6. RISPERIDONE. [Concomitant]
     Active Substance: RISPERIDONE
     Route: 048
  7. CEFEPIME [Suspect]
     Active Substance: CEFEPIME HYDROCHLORIDE
     Indication: OSTEOMYELITIS
     Dosage: 2G
     Route: 042
     Dates: start: 20200129, end: 20200226

REACTIONS (1)
  - Agranulocytosis [Recovering/Resolving]

NARRATIVE: CASE EVENT DATE: 20200226
